FAERS Safety Report 14653004 (Version 1)
Quarter: 2018Q1

REPORT INFORMATION
  Report Type: Report from Study
  Country: US (occurrence: US)
  Receive Date: 20180319
  Receipt Date: 20180319
  Transmission Date: 20180509
  Serious: No
  Sender: FDA-Public Use
  Company Number: PHEH2018US010545

PATIENT
  Age: 33 Year
  Sex: Female

DRUGS (1)
  1. GILENYA [Suspect]
     Active Substance: FINGOLIMOD HYDROCHLORIDE
     Indication: MULTIPLE SCLEROSIS
     Dosage: 0.5 MG, QD
     Route: 048
     Dates: start: 20170117

REACTIONS (5)
  - Memory impairment [Unknown]
  - Hypoaesthesia [Not Recovered/Not Resolved]
  - Asthenia [Recovered/Resolved]
  - Gait disturbance [Not Recovered/Not Resolved]
  - Band sensation [Recovering/Resolving]

NARRATIVE: CASE EVENT DATE: 20170117
